FAERS Safety Report 25621384 (Version 1)
Quarter: 2025Q3

REPORT INFORMATION
  Report Type: Spontaneous
  Country: JP (occurrence: JP)
  Receive Date: 20250730
  Receipt Date: 20250730
  Transmission Date: 20251020
  Serious: Yes (Hospitalization)
  Sender: BRISTOL-MYERS SQUIBB COMPANY
  Company Number: JP-BRISTOL-MYERS SQUIBB COMPANY-2025-105263

PATIENT
  Age: 74 Year

DRUGS (2)
  1. REVLIMID [Suspect]
     Active Substance: LENALIDOMIDE
     Indication: Product used for unknown indication
     Dosage: 1 CAPSULE PER DAY
     Route: 048
     Dates: start: 20250528
  2. REVLIMID [Suspect]
     Active Substance: LENALIDOMIDE
     Dosage: 5 CAPSULES PER DAY, 12 DAYS
     Route: 048
     Dates: start: 20250402, end: 20250413

REACTIONS (4)
  - Dyspnoea [Unknown]
  - Heat illness [Unknown]
  - Fall [Unknown]
  - Circumstance or information capable of leading to medication error [Unknown]

NARRATIVE: CASE EVENT DATE: 20250414
